FAERS Safety Report 6983178-5 (Version None)
Quarter: 2010Q3

REPORT INFORMATION
  Report Type: 
  Country: None (occurrence: None)
  Receive Date: 20100914
  Receipt Date: 20100623
  Transmission Date: 20110219
  Serious: No
  Sender: FDA-Public Use
  Company Number: US-PFIZER INC-2010078752

PATIENT
  Sex: Female
  Weight: 56.7 kg

DRUGS (7)
  1. LYRICA [Suspect]
     Indication: NEUROPATHY PERIPHERAL
     Dosage: 50 MG DAILY
     Route: 048
     Dates: start: 20100619
  2. LYRICA [Suspect]
     Indication: FIBROMYALGIA
  3. MESALAMINE [Concomitant]
     Indication: CROHN'S DISEASE
     Dosage: UNKNOWN DOSE, 1X/DAY
     Route: 048
     Dates: start: 20100501
  4. LORAZEPAM [Concomitant]
     Indication: GENERALISED ANXIETY DISORDER
     Dosage: 1 MG, DAILY
     Dates: start: 20090101
  5. CENTRUM [Concomitant]
     Indication: MULTI-VITAMIN DEFICIENCY
     Dosage: UNKNOWN DOSE, 2X/DAY
     Route: 048
  6. ASCORBIC ACID [Concomitant]
     Dosage: UNK
  7. CALCIUM [Concomitant]
     Dosage: 500 MG, 2X/DAY

REACTIONS (2)
  - DIZZINESS [None]
  - SOMNOLENCE [None]
